FAERS Safety Report 8624527-1 (Version None)
Quarter: 2012Q3

REPORT INFORMATION
  Report Type: 
  Country: None (occurrence: None)
  Receive Date: 20120810
  Receipt Date: 20120725
  Transmission Date: 20120928
  Serious: Yes (Hospitalization, Other)
  Sender: FDA-Public Use
  Company Number: 2012MA009248

PATIENT
  Age: 30 Year
  Sex: Female

DRUGS (1)
  1. ACETAMINOPHEN AND CODEINE PHOSPHATE [Suspect]

REACTIONS (29)
  - HEPATOTOXICITY [None]
  - PURPURA [None]
  - ASCITES [None]
  - RENAL FAILURE CHRONIC [None]
  - ALANINE AMINOTRANSFERASE INCREASED [None]
  - HYPOTENSION [None]
  - BILIRUBIN CONJUGATED [None]
  - HEPATIC ENCEPHALOPATHY [None]
  - PROTHROMBIN TIME PROLONGED [None]
  - RENAL TUBULAR NECROSIS [None]
  - MELAENA [None]
  - HEPATIC FAILURE [None]
  - PULSE ABSENT [None]
  - FLUID OVERLOAD [None]
  - METABOLIC ACIDOSIS [None]
  - MYDRIASIS [None]
  - DRUG SCREEN POSITIVE [None]
  - HAEMATEMESIS [None]
  - ELECTROENCEPHALOGRAM ABNORMAL [None]
  - CONTINUOUS HAEMODIAFILTRATION [None]
  - PUPILLARY REFLEX IMPAIRED [None]
  - UNRESPONSIVE TO STIMULI [None]
  - COAGULOPATHY [None]
  - BODY TEMPERATURE DECREASED [None]
  - HYPOTONIA [None]
  - THROMBOCYTOPENIA [None]
  - HYPOGLYCAEMIA [None]
  - COMA [None]
  - AREFLEXIA [None]
